FAERS Safety Report 5721883-9 (Version None)
Quarter: 2008Q2

REPORT INFORMATION
  Report Type: 
  Country: None (occurrence: None)
  Receive Date: 20080429
  Receipt Date: 20080421
  Transmission Date: 20081010
  Serious: Yes (Hospitalization)
  Sender: FDA-Public Use
  Company Number: FR-PFIZER INC-2007047144

PATIENT
  Sex: Male
  Weight: 104 kg

DRUGS (2)
  1. SU-011,248 [Suspect]
     Indication: METASTATIC RENAL CELL CARCINOMA
     Route: 048
     Dates: start: 20060103, end: 20070416
  2. SINTROM [Concomitant]
     Route: 048

REACTIONS (1)
  - PHLEBITIS [None]
